FAERS Safety Report 4717725-0 (Version None)
Quarter: 2005Q3

REPORT INFORMATION
  Report Type: 
  Country: None (occurrence: None)
  Receive Date: 20050713
  Receipt Date: 20050609
  Transmission Date: 20060218
  Serious: Yes (Other)
  Sender: FDA-Public Use
  Company Number: HQWYE470715JUN05

PATIENT
  Age: 10 Year
  Sex: Male
  Weight: 36.77 kg

DRUGS (4)
  1. ALAVERT [Suspect]
     Indication: EYE DISORDER
     Dosage: 1 TABLET DAILY, ORAL
     Route: 048
     Dates: start: 20050201, end: 20050606
  2. ALAVERT [Suspect]
     Indication: NASAL CONGESTION
     Dosage: 1 TABLET DAILY, ORAL
     Route: 048
     Dates: start: 20050201, end: 20050606
  3. ALAVERT [Suspect]
     Indication: NASAL DISCOMFORT
     Dosage: 1 TABLET DAILY, ORAL
     Route: 048
     Dates: start: 20050201, end: 20050606
  4. ALAVERT [Suspect]
     Indication: THROAT IRRITATION
     Dosage: 1 TABLET DAILY, ORAL
     Route: 048
     Dates: start: 20050201, end: 20050606

REACTIONS (1)
  - GINGIVAL BLISTER [None]
